FAERS Safety Report 15751627 (Version 2)
Quarter: 2019Q2

REPORT INFORMATION
  Report Type: Spontaneous
  Country: FR (occurrence: FR)
  Receive Date: 20181221
  Receipt Date: 20190423
  Transmission Date: 20190711
  Serious: Yes (Hospitalization)
  Sender: FDA-Public Use
  Company Number: FR-PFIZER INC-2018517757

PATIENT
  Age: 29 Year
  Sex: Female
  Weight: 50 kg

DRUGS (12)
  1. LEVOTHYROX [Concomitant]
     Active Substance: LEVOTHYROXINE
     Dosage: UNK
  2. OXYNORMORO [Concomitant]
     Active Substance: OXYCODONE HYDROCHLORIDE
     Dosage: UNK
  3. PANTOPRAZOLE [Concomitant]
     Active Substance: PANTOPRAZOLE
     Dosage: UNK
  4. XGEVA [Concomitant]
     Active Substance: DENOSUMAB
     Dosage: UNK
  5. PREGABALINE [Concomitant]
     Active Substance: PREGABALIN
     Dosage: UNK
  6. ENANTONE [LEUPRORELIN] [Concomitant]
     Active Substance: LEUPROLIDE ACETATE
     Dosage: UNK
  7. IBRANCE [Suspect]
     Active Substance: PALBOCICLIB
     Indication: INVASIVE DUCTAL BREAST CARCINOMA
     Dosage: 125 MG, 1X/DAY
     Route: 048
     Dates: start: 20180921, end: 20181110
  8. PREDNISOLONE. [Concomitant]
     Active Substance: PREDNISOLONE
     Dosage: UNK
  9. OXYCODONE [Concomitant]
     Active Substance: OXYCODONE
     Dosage: UNK
  10. LACTULOSE. [Concomitant]
     Active Substance: LACTULOSE
     Dosage: UNK
  11. PARACETAMOL [Concomitant]
     Active Substance: ACETAMINOPHEN
     Dosage: UNK
  12. LETROZOLE. [Concomitant]
     Active Substance: LETROZOLE
     Dosage: UNK

REACTIONS (1)
  - Acute generalised exanthematous pustulosis [Recovered/Resolved]

NARRATIVE: CASE EVENT DATE: 20181108
